FAERS Safety Report 5489749-X (Version None)
Quarter: 2007Q4

REPORT INFORMATION
  Report Type: 
  Country: None (occurrence: None)
  Receive Date: 20071018
  Receipt Date: 20071010
  Transmission Date: 20080405
  Serious: Yes (Other)
  Sender: FDA-Public Use
  Company Number: US-KINGPHARMUSA00001-K200701315

PATIENT

DRUGS (7)
  1. SEPTRA DS [Suspect]
  2. LAMIVUDINE [Suspect]
  3. ETHAMBUTOL HCL [Suspect]
     Dosage: 800 MG, QD
  4. AZITHROMYCIN [Suspect]
     Dosage: 600 MG, QD
  5. ATAZANAVIR SULFATE [Suspect]
     Dosage: 300 MG, QD
  6. DIDANOSINE [Suspect]
     Dosage: 250 MG, QD
  7. KALETRA [Suspect]

REACTIONS (7)
  - ABDOMINAL PAIN [None]
  - GASTRITIS [None]
  - GASTROINTESTINAL MOTILITY DISORDER [None]
  - HEPATOMEGALY [None]
  - NAUSEA [None]
  - VOMITING [None]
  - WEIGHT DECREASED [None]
